FAERS Safety Report 4331083-5 (Version None)
Quarter: 2004Q1

REPORT INFORMATION
  Report Type: 
  Country: None (occurrence: None)
  Receive Date: 20040331
  Receipt Date: 20040322
  Transmission Date: 20041129
  Serious: Yes (Hospitalization)
  Sender: FDA-Public Use
  Company Number: 20411099BCC

PATIENT
  Age: 68 Year
  Sex: Female
  Weight: 83.9154 kg

DRUGS (19)
  1. ALEVE [Suspect]
     Indication: ARTHRITIS
     Dosage: 440 MG, QD, ORAL; 440 MG, ONCE, ORAL
     Route: 048
     Dates: start: 20030301, end: 20040226
  2. ALEVE [Suspect]
     Indication: PAIN
     Dosage: 440 MG, QD, ORAL; 440 MG, ONCE, ORAL
     Route: 048
     Dates: start: 20030301, end: 20040226
  3. ALEVE [Suspect]
     Indication: ARTHRITIS
     Dosage: 440 MG, QD, ORAL; 440 MG, ONCE, ORAL
     Route: 048
     Dates: start: 20040304
  4. ALEVE [Suspect]
     Indication: PAIN
     Dosage: 440 MG, QD, ORAL; 440 MG, ONCE, ORAL
     Route: 048
     Dates: start: 20040304
  5. SYNTHROID [Concomitant]
  6. LIPITOR [Concomitant]
  7. ALLEGRA [Concomitant]
  8. ESTRADIOL [Concomitant]
  9. AMITRIPTYLINE HCL [Concomitant]
  10. DETROL [Concomitant]
  11. DIOVAN [Concomitant]
  12. LOPRESSOR [Concomitant]
  13. GLUCOSAMINE W/CHONDROITIN SULFATES [Concomitant]
  14. RUTIN [Concomitant]
  15. ZANTAC [Concomitant]
  16. ECOTRIN [Concomitant]
  17. COENZYME Q10 [Concomitant]
  18. SHACKLEY VITAMINS [Concomitant]
  19. VITAMIN C [Concomitant]

REACTIONS (4)
  - ARTERIAL OCCLUSIVE DISEASE [None]
  - JOINT SWELLING [None]
  - MYOCARDIAL INFARCTION [None]
  - OEDEMA PERIPHERAL [None]
